FAERS Safety Report 8127634-5 (Version None)
Quarter: 2012Q1

REPORT INFORMATION
  Report Type: 
  Country: None (occurrence: None)
  Receive Date: 20120210
  Receipt Date: 20120206
  Transmission Date: 20120608
  Serious: Yes (Death)
  Sender: FDA-Public Use
  Company Number: US-ASTELLAS-2011US006711

PATIENT
  Sex: Female

DRUGS (1)
  1. ERLOTINIB HYDROCHLORIDE [Suspect]
     Indication: LUNG CARCINOMA CELL TYPE UNSPECIFIED STAGE 0
     Dosage: 100 MG, UID/QD
     Route: 048
     Dates: start: 20111006, end: 20120114

REACTIONS (5)
  - NEOPLASM MALIGNANT [None]
  - FATIGUE [None]
  - CONSTIPATION [None]
  - DECREASED APPETITE [None]
  - INCORRECT DOSE ADMINISTERED [None]
